FAERS Safety Report 9628415 (Version 2)
Quarter: 2013Q4

REPORT INFORMATION
  Report Type: Spontaneous
  Country: US (occurrence: US)
  Receive Date: 20131017
  Receipt Date: 20131031
  Transmission Date: 20140711
  Serious: Yes (Other)
  Sender: FDA-Public Use
  Company Number: US-PFIZER INC-2013292373

PATIENT
  Age: 57 Year
  Sex: Female
  Weight: 61.2 kg

DRUGS (2)
  1. ESTRING [Suspect]
     Indication: ATROPHIC VULVOVAGINITIS
     Dosage: UNK
     Route: 067
     Dates: start: 20131003, end: 20131010
  2. ESTRING [Suspect]
     Indication: BLOOD OESTROGEN DECREASED

REACTIONS (4)
  - Cystitis [Unknown]
  - Dysuria [Unknown]
  - Pollakiuria [Unknown]
  - Pruritus [Unknown]
